FAERS Safety Report 17072171 (Version 1)
Quarter: 2019Q4

REPORT INFORMATION
  Report Type: Spontaneous
  Country: LT (occurrence: LT)
  Receive Date: 20191125
  Receipt Date: 20191125
  Transmission Date: 20200122
  Serious: Yes (Hospitalization)
  Sender: FDA-Public Use
  Company Number: LT-TAIHO ONCOLOGY  INC-IM-2019-00623

PATIENT
  Age: 58 Year
  Sex: Female
  Weight: 72 kg

DRUGS (3)
  1. LONSURF [Suspect]
     Active Substance: TIPIRACIL HYDROCHLORIDE\TRIFLURIDINE
     Dosage: 45 MG BID (25MG/M2)
     Route: 048
     Dates: start: 20191104
  2. LONSURF [Suspect]
     Active Substance: TIPIRACIL HYDROCHLORIDE\TRIFLURIDINE
     Indication: COLORECTAL CANCER
     Dosage: 60 MG BID
     Route: 048
     Dates: start: 20190817
  3. TRAMADOL HYDROCHLORIDE. [Concomitant]
     Active Substance: TRAMADOL HYDROCHLORIDE
     Indication: PAIN
     Dosage: 200
     Route: 065

REACTIONS (13)
  - Thrombocytopenia [Unknown]
  - Abdominal pain upper [Unknown]
  - Vomiting [Unknown]
  - Scoliosis [Unknown]
  - Kyphosis [Unknown]
  - Gastric disorder [Unknown]
  - Asthenia [Unknown]
  - Osteochondrosis [Unknown]
  - Febrile neutropenia [Unknown]
  - Anaemia [Unknown]
  - Constipation [Unknown]
  - Nausea [Unknown]
  - Granulocytopenia [Unknown]

NARRATIVE: CASE EVENT DATE: 2019
